FAERS Safety Report 10904781 (Version 1)
Quarter: 2015Q1

REPORT INFORMATION
  Report Type: Spontaneous
  Country: US (occurrence: US)
  Receive Date: 20150311
  Receipt Date: 20150311
  Transmission Date: 20150721
  Serious: No
  Sender: FDA-Public Use
  Company Number: US-EISAI MEDICAL RESEARCH-EC-2015-004542

PATIENT
  Sex: Male
  Weight: 77.1 kg

DRUGS (4)
  1. RABEPRAZOLE [Suspect]
     Active Substance: RABEPRAZOLE
     Dosage: GENERIC RABEPRAZOLE
     Route: 048
     Dates: start: 2014, end: 201412
  2. RABEPRAZOLE [Suspect]
     Active Substance: RABEPRAZOLE
     Indication: CROHN^S DISEASE
     Dosage: BRAND ACIPHEX
     Route: 048
     Dates: end: 2014
  3. LOMOTIL [Concomitant]
     Active Substance: ATROPINE SULFATE\DIPHENOXYLATE HYDROCHLORIDE
     Indication: CROHN^S DISEASE
  4. PENTASA [Concomitant]
     Active Substance: MESALAMINE
     Indication: CROHN^S DISEASE

REACTIONS (1)
  - Drug ineffective [Not Recovered/Not Resolved]

NARRATIVE: CASE EVENT DATE: 2014
